FAERS Safety Report 9553825 (Version 2)
Quarter: 2013Q4

REPORT INFORMATION
  Report Type: Spontaneous
  Country: JP (occurrence: JP)
  Receive Date: 20130925
  Receipt Date: 20131004
  Transmission Date: 20140711
  Serious: Yes (Hospitalization, Other)
  Sender: FDA-Public Use
  Company Number: JP-PFIZER INC-2013275616

PATIENT
  Age: 74 Year
  Sex: Female

DRUGS (8)
  1. LYRICA [Suspect]
     Dosage: 25 MG, DAILY
     Route: 048
  2. MECOBALAMIN [Suspect]
     Dosage: 1500 UG, DAILY
     Route: 048
  3. TOLBANASIN [Suspect]
     Dosage: 150 MG, DAILY
     Route: 048
  4. GASMOTIN [Suspect]
     Dosage: 15 MG, DAILY
     Route: 048
  5. BLOPRESS [Suspect]
     Dosage: 8 MG, DAILY
     Route: 048
  6. SHAKUYAKUKANZOUTOU [Suspect]
     Dosage: 22.5 G, DAILY
     Route: 048
  7. ROSEOL [Suspect]
     Route: 048
  8. SELBEX [Suspect]
     Route: 048

REACTIONS (2)
  - Eosinophilic pneumonia [Recovering/Resolving]
  - Cough [Recovering/Resolving]
